FAERS Safety Report 14455023 (Version 3)
Quarter: 2019Q1

REPORT INFORMATION
  Report Type: Spontaneous
  Country: US (occurrence: US)
  Receive Date: 20180129
  Receipt Date: 20190107
  Transmission Date: 20190417
  Serious: Yes (Other)
  Sender: FDA-Public Use
  Company Number: US-DSJP-DSU-2017-149127

PATIENT

DRUGS (3)
  1. BENICAR [Suspect]
     Active Substance: OLMESARTAN MEDOXOMIL
     Indication: ESSENTIAL HYPERTENSION
     Dosage: 20 MG, QD
     Dates: end: 20170827
  2. BENICAR HCT [Suspect]
     Active Substance: HYDROCHLOROTHIAZIDE\OLMESARTAN MEDOXOMIL
     Indication: ESSENTIAL HYPERTENSION
     Dosage: 20-12.5MG  QD
     Route: 048
     Dates: start: 20061027
  3. BENICAR HCT [Suspect]
     Active Substance: HYDROCHLOROTHIAZIDE\OLMESARTAN MEDOXOMIL
     Dosage: 40-12.5MG , QD
     Route: 048
     Dates: end: 20170827

REACTIONS (8)
  - Helicobacter infection [Recovering/Resolving]
  - Hiatus hernia [Unknown]
  - Chronic gastritis [Recovering/Resolving]
  - Haemorrhoids [Unknown]
  - Gastroenteritis [Recovering/Resolving]
  - Constipation [Not Recovered/Not Resolved]
  - Syncope [Recovering/Resolving]
  - Gastrooesophageal reflux disease [Not Recovered/Not Resolved]

NARRATIVE: CASE EVENT DATE: 20080404
